APPROVED DRUG PRODUCT: ERYTHRA-DERM
Active Ingredient: ERYTHROMYCIN
Strength: 2%
Dosage Form/Route: SOLUTION;TOPICAL
Application: A062687 | Product #001 | TE Code: AT
Applicant: MICRO LABS LTD
Approved: Feb 5, 1988 | RLD: No | RS: No | Type: RX